FAERS Safety Report 5030739-9 (Version None)
Quarter: 2006Q2

REPORT INFORMATION
  Report Type: 
  Country: None (occurrence: None)
  Receive Date: 20060615
  Receipt Date: 20060609
  Transmission Date: 20061013
  Serious: Yes (Hospitalization)
  Sender: FDA-Public Use
  Company Number: 2006-02333

PATIENT
  Age: 57 Year
  Sex: Male

DRUGS (4)
  1. CLOMIPRAMINE HYDROCHLORIDE [Suspect]
     Indication: DEMENTIA
     Dosage: 20 MG, DAILY, UNK
     Dates: start: 20010101, end: 20030501
  2. CLOMIPRAMINE HYDROCHLORIDE [Suspect]
     Indication: DEMENTIA
     Dosage: 20 MG, DAILY, UNK
     Dates: start: 20030601, end: 20030601
  3. PROMAZINE HCL [Concomitant]
  4. CIPROFLOXACIN [Concomitant]

REACTIONS (1)
  - NEUROLEPTIC MALIGNANT SYNDROME [None]
